FAERS Safety Report 7895927-2 (Version None)
Quarter: 2011Q4

REPORT INFORMATION
  Report Type: 
  Country: None (occurrence: None)
  Receive Date: 20111106
  Receipt Date: 20110901
  Transmission Date: 20120403
  Serious: No
  Sender: FDA-Public Use
  Company Number: US-AMGEN-USASP2011045028

PATIENT
  Sex: Female

DRUGS (7)
  1. MOTRIN [Concomitant]
     Dosage: UNK
  2. PRAVASTATIN [Concomitant]
     Dosage: UNK
  3. ENBREL [Suspect]
     Indication: RHEUMATOID ARTHRITIS
     Dosage: 50 MG, QWK
     Dates: start: 20110801
  4. METHOTREXATE [Concomitant]
     Dosage: UNK
  5. LISINOPRIL [Concomitant]
     Dosage: UNK
  6. BUPROPION HCL [Concomitant]
     Dosage: UNK
  7. CARVEDILOL [Concomitant]

REACTIONS (1)
  - MELAENA [None]
